FAERS Safety Report 4640749-9 (Version None)
Quarter: 2005Q2

REPORT INFORMATION
  Report Type: 
  Country: None (occurrence: None)
  Receive Date: 20050419
  Receipt Date: 20050408
  Transmission Date: 20051028
  Serious: Yes (Death)
  Sender: FDA-Public Use
  Company Number: BRO-008420

PATIENT
  Age: 62 Year
  Sex: Male

DRUGS (1)
  1. IOPAMIDOL-300 [Suspect]
     Indication: COMPUTERISED TOMOGRAM
     Dosage: 100 ML IV
     Route: 042
     Dates: start: 20050222, end: 20050222

REACTIONS (11)
  - BILIARY TRACT INFECTION [None]
  - BLOOD CREATINE INCREASED [None]
  - BLOOD POTASSIUM INCREASED [None]
  - CARDIAC ARREST [None]
  - CONTRAST MEDIA REACTION [None]
  - DISSEMINATED INTRAVASCULAR COAGULATION [None]
  - GENERAL PHYSICAL HEALTH DETERIORATION [None]
  - MULTI-ORGAN FAILURE [None]
  - RESUSCITATION [None]
  - SEPTIC SHOCK [None]
  - SHOCK [None]
